FAERS Safety Report 20305617 (Version 17)
Quarter: 2024Q2

REPORT INFORMATION
  Report Type: Spontaneous
  Country: US (occurrence: US)
  Receive Date: 20220106
  Receipt Date: 20240618
  Transmission Date: 20240716
  Serious: Yes (Other)
  Sender: FDA-Public Use
  Company Number: US-PFIZER INC-202101242590

PATIENT
  Age: 64 Year
  Sex: Female

DRUGS (19)
  1. XELJANZ [Suspect]
     Active Substance: TOFACITINIB CITRATE
     Indication: Colitis
     Dosage: 10 MG
     Dates: start: 20190322, end: 2019
  2. XELJANZ [Suspect]
     Active Substance: TOFACITINIB CITRATE
     Indication: Colitis ulcerative
     Dosage: 10 MG, TWICE DAILY
     Dates: start: 20190906
  3. XELJANZ [Suspect]
     Active Substance: TOFACITINIB CITRATE
     Dosage: 10 MG AM AND CUTTING 10 MG INTO HALF PM/XELJANZ 5MG 2 TABLETS AM AND 1 TABLET PM
  4. XELJANZ [Suspect]
     Active Substance: TOFACITINIB CITRATE
     Dosage: 2 TABLETS IN THE MORNING AND ONE TABLET AT BEDTIME/EVERY EVENING.
     Route: 048
  5. XELJANZ [Suspect]
     Active Substance: TOFACITINIB CITRATE
     Dosage: 5MG THREE TIMES A DAY
  6. AMLODIPINE [Concomitant]
     Active Substance: AMLODIPINE BESYLATE
     Dosage: UNK
  7. CRANBERRY [Concomitant]
     Active Substance: CRANBERRY
     Dosage: UNK
  8. CRESTOR [Concomitant]
     Active Substance: ROSUVASTATIN CALCIUM
     Dosage: UNK
  9. FISH OIL [Concomitant]
     Active Substance: FISH OIL
     Dosage: UNK
  10. FLUTICASONE PROPIONATE [Concomitant]
     Active Substance: FLUTICASONE PROPIONATE
     Dosage: UNK
  11. HYDROCORTISONE [Concomitant]
     Active Substance: HYDROCORTISONE\HYDROCORTISONE ACETATE
     Dosage: UNK
  12. INTRAROSA [Concomitant]
     Active Substance: PRASTERONE
     Dosage: UNK
  13. LEVOTHYROXINE [Concomitant]
     Active Substance: LEVOTHYROXINE\LEVOTHYROXINE SODIUM
     Dosage: UNK
  14. LORAZEPAM [Concomitant]
     Active Substance: LORAZEPAM
     Dosage: UNK
  15. PENTASA [Concomitant]
     Active Substance: MESALAMINE
     Dosage: UNK
  16. PREDNISONE [Concomitant]
     Active Substance: PREDNISONE
     Dosage: UNK
  17. FLUTICASONE PROPIONATE [Concomitant]
     Active Substance: FLUTICASONE PROPIONATE
     Dosage: UNK
  18. ULTRA FLORA DIGEST [Concomitant]
     Dosage: UNK
  19. VITAMIN C [Concomitant]
     Active Substance: ASCORBIC ACID
     Dosage: UNK

REACTIONS (7)
  - Sinusitis [Unknown]
  - Drug ineffective [Unknown]
  - Drug hypersensitivity [Unknown]
  - Infection [Recovering/Resolving]
  - Malaise [Unknown]
  - Blood cholesterol increased [Recovered/Resolved]
  - Off label use [Unknown]

NARRATIVE: CASE EVENT DATE: 20190322
